FAERS Safety Report 8211726-6 (Version None)
Quarter: 2012Q1

REPORT INFORMATION
  Report Type: 
  Country: None (occurrence: None)
  Receive Date: 20120315
  Receipt Date: 20120312
  Transmission Date: 20120608
  Serious: Yes (Other)
  Sender: FDA-Public Use
  Company Number: US-JNJFOC-20120212533

PATIENT
  Age: 52 Year
  Sex: Female
  Weight: 90.72 kg

DRUGS (5)
  1. VISINE-A [Suspect]
     Indication: EYE IRRITATION
     Dosage: TWO TO THREE DROPS, TWICE
     Route: 047
     Dates: start: 20120221, end: 20120221
  2. ZOLOFT [Concomitant]
     Indication: DEPRESSION
     Dosage: FOR FIVE YEARS
     Route: 065
     Dates: start: 20070101
  3. VISINE-A [Suspect]
     Indication: OCULAR HYPERAEMIA
     Dosage: TWO TO THREE DROPS, TWICE
     Route: 047
     Dates: start: 20120221, end: 20120221
  4. METFORMIN HCL [Concomitant]
     Indication: DIABETES MELLITUS
     Dosage: 1.5 TABS, FOR THREE YEARS
     Route: 048
     Dates: start: 20090101
  5. UNKNOWN CHOLESTEROL MEDICATION [Concomitant]
     Indication: BLOOD CHOLESTEROL INCREASED
     Dosage: FOR THREE YEARS
     Route: 065
     Dates: start: 20090101

REACTIONS (3)
  - APPLICATION SITE IRRITATION [None]
  - APPLICATION SITE VESICLES [None]
  - APPLICATION SITE PAIN [None]
